FAERS Safety Report 7161095-8 (Version None)
Quarter: 2010Q4

REPORT INFORMATION
  Report Type: 
  Country: None (occurrence: None)
  Receive Date: 20101215
  Receipt Date: 20101206
  Transmission Date: 20110411
  Serious: Yes (Death, Hospitalization)
  Sender: FDA-Public Use
  Company Number: US-BIOGENIDEC-2010BI042797

PATIENT
  Age: 52 Year
  Sex: Female

DRUGS (1)
  1. TYSABRI [Suspect]
     Indication: MULTIPLE SCLEROSIS
     Route: 042
     Dates: start: 20080627

REACTIONS (5)
  - CLOSTRIDIAL INFECTION [None]
  - DEATH [None]
  - DEMENTIA [None]
  - URINARY TRACT INFECTION [None]
  - UROSEPSIS [None]
